FAERS Safety Report 24247662 (Version 1)
Quarter: 2024Q3

REPORT INFORMATION
  Report Type: Report from Study
  Country: US (occurrence: US)
  Receive Date: 20240826
  Receipt Date: 20240826
  Transmission Date: 20241017
  Serious: No
  Sender: ACADIA PHARMACEUTICALS
  Company Number: US-ACADIA PHARMACEUTICALS INC.-ACA-2024-PIM-004260

PATIENT
  Age: 70 Year
  Sex: Female

DRUGS (9)
  1. NUPLAZID [Suspect]
     Active Substance: PIMAVANSERIN TARTRATE
     Indication: Parkinson^s disease psychosis
     Dosage: 34 MILLIGRAM, QD
     Route: 048
     Dates: start: 20240213
  2. NUPLAZID [Suspect]
     Active Substance: PIMAVANSERIN TARTRATE
     Dosage: 34 MILLIGRAM, QD
     Route: 048
     Dates: end: 20240821
  3. GABAPENTIN [Concomitant]
     Active Substance: GABAPENTIN
  4. TOPIRAMATE [Concomitant]
     Active Substance: TOPIRAMATE
  5. LAMOTRIGINE [Concomitant]
     Active Substance: LAMOTRIGINE
  6. PRAMIPEXOLE [Concomitant]
     Active Substance: PRAMIPEXOLE\PRAMIPEXOLE DIHYDROCHLORIDE
  7. METHADONE [Concomitant]
     Active Substance: METHADONE HYDROCHLORIDE
  8. TIZANIDINE [Concomitant]
     Active Substance: TIZANIDINE
  9. LEVOTHYROXINE [Concomitant]
     Active Substance: LEVOTHYROXINE\LEVOTHYROXINE SODIUM

REACTIONS (3)
  - Insomnia [Not Recovered/Not Resolved]
  - Drug ineffective [Recovered/Resolved]
  - Hallucination [Not Recovered/Not Resolved]

NARRATIVE: CASE EVENT DATE: 20240821
